FAERS Safety Report 9239780 (Version 1)
Quarter: 2013Q2

REPORT INFORMATION
  Report Type: Spontaneous
  Country: US (occurrence: US)
  Receive Date: 20130418
  Receipt Date: 20130418
  Transmission Date: 20140414
  Serious: Yes (Other)
  Sender: FDA-Public Use
  Company Number: US-SANOFI-AVENTIS-2012SA028505

PATIENT
  Age: 72 Year
  Sex: Female

DRUGS (3)
  1. LOVENOX [Suspect]
     Indication: THROMBOSIS
     Route: 058
     Dates: start: 20070220
  2. ANASTROZOLE [Concomitant]
     Indication: NEOPLASM MALIGNANT
  3. COUMADIN [Concomitant]

REACTIONS (1)
  - Thrombosis [Unknown]
